FAERS Safety Report 7116349-8 (Version None)
Quarter: 2010Q4

REPORT INFORMATION
  Report Type: 
  Country: None (occurrence: None)
  Receive Date: 20101122
  Receipt Date: 20101112
  Transmission Date: 20110411
  Serious: Yes (Congenital Anomaly)
  Sender: FDA-Public Use
  Company Number: A0893577A

PATIENT
  Sex: Male

DRUGS (3)
  1. PAXIL [Suspect]
     Indication: ANXIETY DISORDER
     Dosage: 40MG PER DAY
  2. PRENATAL VITAMINS [Concomitant]
  3. UNSPECIFIED ANTIBIOTIC [Concomitant]
     Indication: VAGINAL INFECTION

REACTIONS (2)
  - CARDIAC MURMUR [None]
  - DRUG EXPOSURE DURING PREGNANCY [None]
